FAERS Safety Report 7161256-8 (Version None)
Quarter: 2010Q4

REPORT INFORMATION
  Report Type: 
  Country: None (occurrence: None)
  Receive Date: 20101210
  Receipt Date: 20101210
  Transmission Date: 20110411
  Serious: Yes (Other)
  Sender: FDA-Public Use
  Company Number: None

PATIENT
  Age: 42 Year
  Sex: Female
  Weight: 72.5755 kg

DRUGS (1)
  1. WYGESIC [Suspect]
     Indication: PAIN
     Dosage: 1 2 TIMES DAILY PO
     Route: 048
     Dates: start: 20100930, end: 20101202

REACTIONS (3)
  - CHEST PAIN [None]
  - DYSPNOEA [None]
  - PRODUCT QUALITY ISSUE [None]
